FAERS Safety Report 5512786-3 (Version None)
Quarter: 2007Q4

REPORT INFORMATION
  Report Type: 
  Country: None (occurrence: None)
  Receive Date: 20071112
  Receipt Date: 20071105
  Transmission Date: 20080405
  Serious: Yes (Hospitalization)
  Sender: FDA-Public Use
  Company Number: IN-AVENTIS-200715162EU

PATIENT
  Age: 69 Year
  Sex: Male
  Weight: 59 kg

DRUGS (4)
  1. LASIX [Suspect]
     Route: 042
     Dates: start: 20071025
  2. INVESTIGATIONAL DRUG [Concomitant]
     Indication: HYPERTENSION
     Route: 048
     Dates: start: 20071017, end: 20071026
  3. PAN-D [Concomitant]
     Indication: GASTROOESOPHAGEAL REFLUX PROPHYLAXIS
     Route: 048
     Dates: start: 20071020
  4. ANTIHYPERTENSIVES [Concomitant]
     Indication: HYPERTENSION
     Dates: start: 20071026

REACTIONS (5)
  - ABNORMAL BEHAVIOUR [None]
  - BLOOD PRESSURE INCREASED [None]
  - DEPRESSED LEVEL OF CONSCIOUSNESS [None]
  - HYPONATRAEMIA [None]
  - METABOLIC ENCEPHALOPATHY [None]
